FAERS Safety Report 8950771 (Version 2)
Quarter: 2012Q4

REPORT INFORMATION
  Report Type: 
  Country: US (occurrence: US)
  Receive Date: 20121207
  Receipt Date: 20121227
  Transmission Date: 20130627
  Serious: No
  Sender: FDA-Public Use
  Company Number: US-PFIZER INC-2012307062

PATIENT
  Age: 59 Year
  Sex: Female
  Weight: 95.15 kg

DRUGS (6)
  1. NEURONTIN [Suspect]
     Indication: SHINGLES
     Dosage: UNK
     Route: 048
     Dates: end: 2011
  2. NEURONTIN [Suspect]
     Indication: PAIN
  3. LANTUS [Concomitant]
     Indication: DIABETES
     Dosage: 50 units, 2x/day
  4. HUMALOG [Concomitant]
     Indication: DIABETES
     Dosage: UNK
  5. HYDROCHLOROTHIAZIDE [Concomitant]
     Indication: SWELLING OF LEGS
     Dosage: 25 mg, 1x/day
  6. BENICAR [Concomitant]
     Indication: BLOOD PRESSURE HIGH
     Dosage: UNK

REACTIONS (1)
  - Drug ineffective [Unknown]
